FAERS Safety Report 5715488-3 (Version None)
Quarter: 2008Q2

REPORT INFORMATION
  Report Type: 
  Country: None (occurrence: None)
  Receive Date: 20080422
  Receipt Date: 20080418
  Transmission Date: 20081010
  Serious: Yes (Other)
  Sender: FDA-Public Use
  Company Number: CHPA2008US06862

PATIENT
  Age: 77 Year
  Sex: Female

DRUGS (4)
  1. BENEFIBER UNKNOWN (NCH)(UNKNOWN) UNKNOWN [Suspect]
     Indication: CONSTIPATION
     Dosage: 2 TSP, BID, ORAL; 2 TSP, QD, ORAL
     Route: 048
  2. VERAPAMIL [Concomitant]
  3. LISINOPRIL [Concomitant]
  4. PRILOSEC [Concomitant]

REACTIONS (2)
  - HEART RATE INCREASED [None]
  - NAUSEA [None]
